FAERS Safety Report 17931337 (Version 1)
Quarter: 2020Q2

REPORT INFORMATION
  Report Type: Spontaneous
  Country: SK (occurrence: SK)
  Receive Date: 20200623
  Receipt Date: 20200623
  Transmission Date: 20200714
  Serious: Yes (Death, Life-Threatening, Other)
  Sender: FDA-Public Use
  Company Number: NVSC2020SK060670

PATIENT
  Sex: Female

DRUGS (2)
  1. METHOTREXATE. [Suspect]
     Active Substance: METHOTREXATE
     Indication: RHEUMATIC DISORDER
  2. METHOTREXATE. [Suspect]
     Active Substance: METHOTREXATE
     Indication: MYELODYSPLASTIC SYNDROME
     Dosage: UNK
     Route: 065

REACTIONS (8)
  - Headache [Fatal]
  - Vertigo [Fatal]
  - Epilepsy [Fatal]
  - Coma [Fatal]
  - Disorientation [Fatal]
  - Memory impairment [Fatal]
  - Leukoencephalopathy [Fatal]
  - Hemiparesis [Fatal]
